FAERS Safety Report 8046714 (Version 5)
Quarter: 2012Q4

REPORT INFORMATION
  Report Type: 
  Country: US (occurrence: US)
  Receive Date: 20110721
  Receipt Date: 20120921
  Transmission Date: 20130627
  Serious: Yes (Hospitalization)
  Sender: FDA-Public Use
  Company Number: US-BAYER-2011-062548

PATIENT
  Age: 39 Year
  Sex: Female
  Weight: 62.59 kg

DRUGS (5)
  1. YASMIN [Suspect]
     Indication: CONTRACEPTION
     Dosage: UNK
     Dates: start: 200602, end: 201001
  2. WELLBUTRIN SR [Concomitant]
     Indication: DEPRESSION
     Dosage: 150 mg, QD
     Route: 048
     Dates: start: 2000, end: 2010
  3. LORATADINE [Concomitant]
     Dosage: 10 mg, UNK
     Route: 048
  4. FLUTICASONE PROPIONATE [Concomitant]
     Dosage: 0.05 %, UNK
     Route: 045
  5. PROVIGIL [Concomitant]
     Dosage: 200 mg, UNK
     Route: 048

REACTIONS (9)
  - Gallbladder disorder [None]
  - Cholecystitis acute [None]
  - Emotional distress [None]
  - Anxiety [None]
  - Chest pain [None]
  - Nausea [None]
  - Vomiting [None]
  - Musculoskeletal chest pain [None]
  - Dyspepsia [None]
